FAERS Safety Report 7189325-7 (Version None)
Quarter: 2010Q4

REPORT INFORMATION
  Report Type: 
  Country: None (occurrence: None)
  Receive Date: 20101222
  Receipt Date: 20100813
  Transmission Date: 20110411
  Serious: Yes (Other)
  Sender: FDA-Public Use
  Company Number: US-AMGEN-QUU426316

PATIENT

DRUGS (3)
  1. ENBREL [Suspect]
     Indication: PSORIASIS
     Dosage: 50 MG, QWK
     Route: 058
     Dates: start: 20041115, end: 20100714
  2. ENBREL [Suspect]
     Indication: PSORIATIC ARTHROPATHY
  3. EFALIZUMAB [Concomitant]
     Dosage: UNK UNK, UNK
     Dates: start: 20050101, end: 20090101

REACTIONS (3)
  - MULTIPLE SCLEROSIS [None]
  - OPTIC NEURITIS [None]
  - PSORIASIS [None]
